FAERS Safety Report 5051037-3 (Version None)
Quarter: 2006Q3

REPORT INFORMATION
  Report Type: 
  Country: None (occurrence: None)
  Receive Date: 20060714
  Receipt Date: 20060704
  Transmission Date: 20061208
  Serious: Yes (Other)
  Sender: FDA-Public Use
  Company Number: PHRM2006FR02013

PATIENT
  Sex: Female

DRUGS (1)
  1. LAMISIL [Suspect]
     Indication: NAIL TINEA
     Dosage: 250 MG, QD
     Route: 048
     Dates: start: 20060401, end: 20060601

REACTIONS (5)
  - AGEUSIA [None]
  - DUODENAL ULCER [None]
  - NAUSEA [None]
  - ORAL DISCOMFORT [None]
  - WEIGHT DECREASED [None]
